FAERS Safety Report 19829839 (Version 1)
Quarter: 2021Q3

REPORT INFORMATION
  Report Type: Spontaneous
  Country: US (occurrence: US)
  Receive Date: 20210914
  Receipt Date: 20210914
  Transmission Date: 20211014
  Serious: Yes (Life-Threatening)
  Sender: FDA-Public Use
  Company Number: None

PATIENT
  Age: 30 Year
  Sex: Male
  Weight: 97.43 kg

DRUGS (3)
  1. REGEN?COV [Suspect]
     Active Substance: CASIRIVIMAB\IMDEVIMAB
  2. EPINEPHRINE. [Concomitant]
     Active Substance: EPINEPHRINE
     Dates: end: 20210914
  3. BENADRYL [Concomitant]
     Active Substance: DIPHENHYDRAMINE HYDROCHLORIDE
     Dates: start: 20210914, end: 20210914

REACTIONS (5)
  - Chest pain [None]
  - Dyspnoea [None]
  - Tachycardia [None]
  - Cold sweat [None]
  - Oxygen saturation decreased [None]

NARRATIVE: CASE EVENT DATE: 20210914
